FAERS Safety Report 8063899-6 (Version None)
Quarter: 2012Q1

REPORT INFORMATION
  Report Type: 
  Country: None (occurrence: None)
  Receive Date: 20120123
  Receipt Date: 20120113
  Transmission Date: 20120608
  Serious: Yes (Other)
  Sender: FDA-Public Use
  Company Number: US-BAYER-2011-069919

PATIENT
  Sex: Female
  Weight: 69 kg

DRUGS (4)
  1. VALTREX [Concomitant]
     Indication: ORAL HERPES
     Dosage: UNK
     Dates: start: 20060101, end: 20110101
  2. YASMIN [Suspect]
     Indication: CONTRACEPTION
     Dosage: UNK
     Dates: start: 20050819, end: 20090812
  3. FLONASE [Concomitant]
     Indication: MULTIPLE ALLERGIES
     Dosage: UNK
     Dates: start: 20050801, end: 20110101
  4. YASMIN [Suspect]
     Indication: PREMENSTRUAL SYNDROME

REACTIONS (6)
  - GALLBLADDER DISORDER [None]
  - INJURY [None]
  - ANHEDONIA [None]
  - EMOTIONAL DISTRESS [None]
  - PAIN [None]
  - ANXIETY [None]
